FAERS Safety Report 10419832 (Version 1)
Quarter: 2014Q3

REPORT INFORMATION
  Report Type: Spontaneous
  Country: US (occurrence: None)
  Receive Date: 20140828
  Receipt Date: 20140828
  Transmission Date: 20150326
  Serious: Yes (Disabling)
  Sender: FDA-Public Use
  Company Number: 2504168

PATIENT
  Sex: Female

DRUGS (4)
  1. AMITRIPTYLENE [Concomitant]
  2. METOCLOPRAMIDE. [Suspect]
     Active Substance: METOCLOPRAMIDE
     Indication: NAUSEA
     Route: 040
     Dates: start: 20140818, end: 20140818
  3. TORADOL [Suspect]
     Active Substance: KETOROLAC TROMETHAMINE
     Indication: HEADACHE
     Route: 040
     Dates: start: 20140818, end: 20140818
  4. CELEXA [Concomitant]
     Active Substance: CITALOPRAM HYDROBROMIDE

REACTIONS (9)
  - Panic reaction [None]
  - Pain [None]
  - Depression [None]
  - Nausea [None]
  - Drug hypersensitivity [None]
  - Anxiety [None]
  - Headache [None]
  - Extrapyramidal disorder [None]
  - Condition aggravated [None]

NARRATIVE: CASE EVENT DATE: 20120818
